FAERS Safety Report 17196494 (Version 1)
Quarter: 2019Q4

REPORT INFORMATION
  Report Type: Spontaneous
  Country: US (occurrence: US)
  Receive Date: 20191224
  Receipt Date: 20191224
  Transmission Date: 20200122
  Serious: Yes (Other)
  Sender: FDA-Public Use
  Company Number: US-PFIZER INC-2019548409

PATIENT
  Age: 69 Year
  Sex: Female
  Weight: 68.4 kg

DRUGS (2)
  1. PREMPRO [Suspect]
     Active Substance: ESTROGENS, CONJUGATED\MEDROXYPROGESTERONE ACETATE
     Indication: HOT FLUSH
     Dosage: 1 DF, DAILY (0.625 MG-2.5MG ONE TABLET PER DAY)
     Route: 048
  2. CELEBREX [Suspect]
     Active Substance: CELECOXIB
     Indication: ARTHRITIS
     Dosage: 200 MG, 200 MG, (200 MG CAPSULE TWICE PER DAY SOMETIMES ONLY ONCE PER DAY
     Dates: end: 2019

REACTIONS (2)
  - Arthropathy [Recovering/Resolving]
  - Condition aggravated [Recovering/Resolving]
